FAERS Safety Report 9473550 (Version 1)
Quarter: 2013Q3

REPORT INFORMATION
  Report Type: Spontaneous
  Country: US (occurrence: US)
  Receive Date: 20130823
  Receipt Date: 20130823
  Transmission Date: 20140515
  Serious: No
  Sender: FDA-Public Use
  Company Number: US-GALDERMA-US13001874

PATIENT
  Age: 49 Year
  Sex: Female

DRUGS (4)
  1. METROGEL (METRONIDAZOLE) GEL, 1% [Suspect]
     Indication: ROSACEA
     Dosage: 1%
     Route: 061
     Dates: start: 20130529, end: 20130602
  2. METROGEL (METRONIDAZOLE) GEL, 1% [Suspect]
     Dosage: 1%
     Route: 061
     Dates: start: 201306
  3. CETAPHIL ANTIBACTERIAL GENTLE CLEANSING BAR [Concomitant]
     Indication: THERAPEUTIC SKIN CARE TOPICAL
     Route: 061
  4. VANICREAM [Concomitant]
     Indication: DRY SKIN PROPHYLAXIS
     Route: 061

REACTIONS (2)
  - Skin exfoliation [Not Recovered/Not Resolved]
  - Swelling face [Not Recovered/Not Resolved]
